FAERS Safety Report 10997260 (Version 1)
Quarter: 2015Q2

REPORT INFORMATION
  Report Type: Spontaneous
  Country: US (occurrence: None)
  Receive Date: 20150402
  Receipt Date: 20150402
  Transmission Date: 20150821
  Serious: Yes (Hospitalization)
  Sender: FDA-Public Use
  Company Number: 2014-US-002880

PATIENT
  Age: 22 Year
  Sex: Male

DRUGS (1)
  1. FAZACLO [Suspect]
     Active Substance: CLOZAPINE
     Indication: BIPOLAR DISORDER
     Dosage: 25-100 MG, QD, ORAL
     Route: 048
     Dates: start: 20120525, end: 20120607

REACTIONS (2)
  - Cardiac failure acute [None]
  - Myocarditis [None]

NARRATIVE: CASE EVENT DATE: 20120614
